FAERS Safety Report 6780303-6 (Version None)
Quarter: 2010Q2

REPORT INFORMATION
  Report Type: 
  Country: None (occurrence: None)
  Receive Date: 20100618
  Receipt Date: 20100609
  Transmission Date: 20101027
  Serious: Yes (Hospitalization)
  Sender: FDA-Public Use
  Company Number: US-JNJFOC-20100604036

PATIENT
  Sex: Male

DRUGS (3)
  1. INVEGA SUSTENNA [Suspect]
     Indication: SCHIZOPHRENIA
     Route: 030
  2. RISPERDAL [Concomitant]
     Indication: PSYCHOTIC DISORDER
     Route: 048
  3. CHLORAL HYDRATE [Concomitant]
     Indication: INSOMNIA
     Route: 048

REACTIONS (1)
  - DRUG INEFFECTIVE [None]
